FAERS Safety Report 9198499 (Version 1)
Quarter: 2013Q1

REPORT INFORMATION
  Report Type: Spontaneous
  Country: US (occurrence: US)
  Receive Date: 20130329
  Receipt Date: 20130329
  Transmission Date: 20140127
  Serious: Yes (Death)
  Sender: FDA-Public Use
  Company Number: PHEH2013US006969

PATIENT
  Age: 79 Year
  Sex: Male

DRUGS (15)
  1. RECLAST [Suspect]
     Dosage: 5 MG, UNK
     Route: 042
  2. CYANOCOBALAMIN [Concomitant]
     Dosage: 1 ML (EVERY MONTH)
     Dates: start: 20110609
  3. MECLOFENAMATE SODIUM [Concomitant]
     Dosage: 1 DF, BID
     Route: 048
     Dates: start: 20120430
  4. XYZAL [Concomitant]
     Dosage: 1 DF, QD
     Route: 048
  5. URSODIOL [Concomitant]
     Dosage: 1 DF, TID
  6. PERCOCET [Concomitant]
     Dosage: 1 DF, Q4H
     Route: 048
  7. LASIX [Concomitant]
     Dosage: 1 DF, QD
     Route: 048
  8. ALDACTONE [Concomitant]
     Dosage: 1 DF, BID
     Route: 048
  9. FOLIC ACID [Concomitant]
     Dosage: 1 DF, QD
     Route: 048
  10. FERROUS SULFATE [Concomitant]
     Dosage: 1 DF, BID
  11. MULTI-VIT [Concomitant]
     Dosage: 1 DF, QD
     Route: 048
  12. CALCIUM [Concomitant]
     Dosage: 600 MG, QD
  13. VITAMIN D [Concomitant]
     Dosage: 400 MG, QD
  14. MAGNESIUM [Concomitant]
     Dosage: 300 MG, QD
  15. SYNTHROID [Concomitant]
     Dosage: 1 DF (PRIOR TO BREAKFAST)
     Route: 048
     Dates: start: 20120326, end: 20120326

REACTIONS (1)
  - Death [Fatal]
